FAERS Safety Report 8554671-9 (Version None)
Quarter: 2012Q3

REPORT INFORMATION
  Report Type: 
  Country: None (occurrence: None)
  Receive Date: 20120731
  Receipt Date: 20120724
  Transmission Date: 20120928
  Serious: Yes (Death, Hospitalization, Other)
  Sender: FDA-Public Use
  Company Number: US-BAXTER-2012BAX009148

PATIENT

DRUGS (1)
  1. DIANEAL [Suspect]
     Dosage: TOTAL FILL VOLUME 13.8 L
     Route: 033
     Dates: start: 20100730, end: 20120716

REACTIONS (5)
  - DEATH [None]
  - PNEUMONIA [None]
  - BRADYCARDIA [None]
  - SICKLE CELL ANAEMIA WITH CRISIS [None]
  - MYOCARDIAL INFARCTION [None]
